FAERS Safety Report 7604269-1 (Version None)
Quarter: 2011Q3

REPORT INFORMATION
  Report Type: 
  Country: None (occurrence: None)
  Receive Date: 20110712
  Receipt Date: 20110704
  Transmission Date: 20111222
  Serious: Yes (Death)
  Sender: FDA-Public Use
  Company Number: NO-BRISTOL-MYERS SQUIBB COMPANY-15892391

PATIENT
  Age: 77 Year
  Sex: Female

DRUGS (6)
  1. CETIRIZINE HCL [Concomitant]
     Route: 048
  2. AMLODIPINE [Concomitant]
     Indication: HYPERTENSION
     Route: 048
  3. INSULIN [Concomitant]
     Indication: DIABETES MELLITUS
     Route: 058
  4. ATACAND [Concomitant]
     Indication: HYPERTENSION
     Route: 048
  5. GLUCOPHAGE [Suspect]
     Indication: DIABETES MELLITUS
     Route: 048
  6. PINEX FORTE [Concomitant]
     Route: 048

REACTIONS (2)
  - LACTIC ACIDOSIS [None]
  - DEATH [None]
